FAERS Safety Report 5465175-4 (Version None)
Quarter: 2007Q3

REPORT INFORMATION
  Report Type: 
  Country: None (occurrence: None)
  Receive Date: 20070924
  Receipt Date: 20070917
  Transmission Date: 20080115
  Serious: Yes (Hospitalization, Disabling)
  Sender: FDA-Public Use
  Company Number: HQWYE187517SEP07

PATIENT
  Sex: Male

DRUGS (1)
  1. INDERAL [Suspect]
     Route: 048

REACTIONS (1)
  - RETINAL VASCULAR THROMBOSIS [None]
